FAERS Safety Report 21657394 (Version 1)
Quarter: 2022Q4

REPORT INFORMATION
  Report Type: Report from Study
  Country: IT (occurrence: IT)
  Receive Date: 20221129
  Receipt Date: 20221129
  Transmission Date: 20230113
  Serious: Yes (Hospitalization)
  Sender: FDA-Public Use
  Company Number: IT-ROCHE-2835679

PATIENT
  Age: 61 Year
  Sex: Female
  Weight: 97 kg

DRUGS (9)
  1. PACLITAXEL [Suspect]
     Active Substance: PACLITAXEL
     Indication: Ovarian cancer
     Dosage: 333 MILLIGRAM (0N 11-MAY-2021 LAST DOSE WAS ADMINISTERED.)
     Route: 042
     Dates: start: 20210305, end: 20210511
  2. CISPLATIN [Suspect]
     Active Substance: CISPLATIN
     Indication: Ovarian cancer
     Dosage: 95 MILLIGRAM
     Route: 042
     Dates: start: 20210416, end: 20210511
  3. ATEZOLIZUMAB [Suspect]
     Active Substance: ATEZOLIZUMAB
     Indication: Ovarian cancer
     Dosage: UNK
     Route: 042
     Dates: start: 20210305
  4. METFORMIN [Concomitant]
     Active Substance: METFORMIN HYDROCHLORIDE
     Indication: Diabetes mellitus
     Dosage: 500 MILLIGRAM
     Route: 065
     Dates: start: 202005
  5. AKYNZEO [Concomitant]
     Dosage: UNK
     Route: 065
     Dates: start: 20210511, end: 20210511
  6. RAMIPRIL [Concomitant]
     Active Substance: RAMIPRIL
     Indication: Hypertension
     Dosage: 10 MILLIGRAM
     Route: 065
     Dates: start: 2010
  7. LORATADINE [Concomitant]
     Active Substance: LORATADINE
     Dosage: 10 MG
     Route: 065
     Dates: start: 20210510, end: 20210510
  8. PREDNISONE [Concomitant]
     Active Substance: PREDNISONE
     Dosage: 50 MG
     Route: 065
     Dates: start: 20210510, end: 20210510
  9. ENOXAPARIN SODIUM [Concomitant]
     Active Substance: ENOXAPARIN SODIUM
     Dosage: UNK
     Route: 065

REACTIONS (2)
  - Sepsis [Recovered/Resolved]
  - Ocular toxicity [Not Recovered/Not Resolved]

NARRATIVE: CASE EVENT DATE: 20210519
